FAERS Safety Report 23243471 (Version 1)
Quarter: 2023Q4

REPORT INFORMATION
  Report Type: Spontaneous
  Country: US (occurrence: US)
  Receive Date: 20231130
  Receipt Date: 20231130
  Transmission Date: 20240110
  Serious: Yes (Other)
  Sender: FDA-Public Use
  Company Number: US-JNJFOC-20231159089

PATIENT
  Age: 86 Year
  Sex: Female
  Weight: 70.37 kg

DRUGS (2)
  1. XARELTO [Suspect]
     Active Substance: RIVAROXABAN
     Indication: Pulmonary embolism
     Route: 048
     Dates: start: 20231025
  2. XARELTO [Suspect]
     Active Substance: RIVAROXABAN
     Route: 048

REACTIONS (6)
  - Pulmonary thrombosis [Unknown]
  - Malaise [Unknown]
  - Nausea [Unknown]
  - Product label issue [Unknown]
  - Gingival bleeding [Unknown]
  - Abdominal discomfort [Unknown]
